FAERS Safety Report 5265076-0 (Version None)
Quarter: 2007Q1

REPORT INFORMATION
  Report Type: 
  Country: None (occurrence: None)
  Receive Date: 20070314
  Receipt Date: 20070305
  Transmission Date: 20070707
  Serious: Yes (Other)
  Sender: FDA-Public Use
  Company Number: US-AMGEN-US203055

PATIENT
  Sex: Female
  Weight: 40.9 kg

DRUGS (1)
  1. ENBREL [Suspect]
     Indication: RHEUMATOID ARTHRITIS
     Route: 058
     Dates: start: 20010215, end: 20061205

REACTIONS (1)
  - IDIOPATHIC THROMBOCYTOPENIC PURPURA [None]
